FAERS Safety Report 10994210 (Version 1)
Quarter: 2015Q2

REPORT INFORMATION
  Report Type: Spontaneous
  Country: JP (occurrence: JP)
  Receive Date: 20150407
  Receipt Date: 20150407
  Transmission Date: 20150821
  Serious: Yes (Hospitalization, Other)
  Sender: FDA-Public Use
  Company Number: JP-CIPLA LTD.-2015JP02766

PATIENT

DRUGS (3)
  1. CARVEDILOL. [Suspect]
     Active Substance: CARVEDILOL
     Indication: CARDIOMYOPATHY
     Dosage: 10 MG, BID
  2. PROCAINAMIDE [Suspect]
     Active Substance: PROCAINAMIDE HYDROCHLORIDE
     Indication: CARDIOMYOPATHY
     Dosage: 750 MG, QD
  3. PROCAINAMIDE [Suspect]
     Active Substance: PROCAINAMIDE HYDROCHLORIDE
     Dosage: 500 MG, QD

REACTIONS (3)
  - Fatigue [Unknown]
  - Long QT syndrome [Recovered/Resolved]
  - Dyspnoea [Recovered/Resolved]
